FAERS Safety Report 13043251 (Version 1)
Quarter: 2016Q4

REPORT INFORMATION
  Report Type: Report from Study
  Country: BR (occurrence: BR)
  Receive Date: 20161219
  Receipt Date: 20161219
  Transmission Date: 20170207
  Serious: Yes (Other)
  Sender: FDA-Public Use
  Company Number: PHHY2016BR173366

PATIENT
  Sex: Male

DRUGS (3)
  1. QUETROS [Concomitant]
     Active Substance: QUETIAPINE
     Indication: PRODUCT USED FOR UNKNOWN INDICATION
     Dosage: UNK
     Route: 065
  2. EXELON PATCH [Suspect]
     Active Substance: RIVASTIGMINE
     Indication: PRODUCT USED FOR UNKNOWN INDICATION
     Dosage: 9.6 MG (PATCH 10 CM2)
     Route: 065
  3. EBIX [Concomitant]
     Active Substance: MEMANTINE HYDROCHLORIDE
     Indication: PRODUCT USED FOR UNKNOWN INDICATION
     Dosage: UNK
     Route: 065

REACTIONS (7)
  - Gait disturbance [Unknown]
  - Pneumonia [Unknown]
  - Malaise [Unknown]
  - Cerebrovascular accident [Unknown]
  - Asthenia [Unknown]
  - Dementia [Unknown]
  - Speech disorder [Unknown]
